FAERS Safety Report 10531651 (Version 1)
Quarter: 2014Q4

REPORT INFORMATION
  Report Type: Report from Study
  Country: BR (occurrence: BR)
  Receive Date: 20141021
  Receipt Date: 20141021
  Transmission Date: 20150529
  Serious: Yes (Hospitalization, Other)
  Sender: FDA-Public Use
  Company Number: PHHY2014BR137037

PATIENT
  Sex: Male
  Weight: 116 kg

DRUGS (3)
  1. DIOVAN TRIPLE [Suspect]
     Active Substance: AMLODIPINE BESYLATE\HYDROCHLOROTHIAZIDE\VALSARTAN
     Indication: HYPERTENSION
     Dosage: 1 DF (160/12.5/10MG), QD
     Route: 048
  2. GALVUS MET [Suspect]
     Active Substance: METFORMIN HYDROCHLORIDE\VILDAGLIPTIN
     Indication: DIABETES MELLITUS
     Dosage: 1 DF, BID
     Route: 048
     Dates: end: 201407
  3. RASILEZ [Suspect]
     Active Substance: ALISKIREN
     Indication: HYPERTENSION
     Dosage: 300 MG, QD (AT NIGHT)
     Route: 048
     Dates: end: 201407

REACTIONS (8)
  - Syncope [Recovering/Resolving]
  - Abasia [Recovering/Resolving]
  - Sleep disorder [Recovering/Resolving]
  - Bone marrow disorder [Recovering/Resolving]
  - Intervertebral disc protrusion [Recovering/Resolving]
  - Movement disorder [Recovering/Resolving]
  - Weight decreased [Recovering/Resolving]
  - Hypotension [Recovered/Resolved]
